FAERS Safety Report 5470400-X (Version None)
Quarter: 2007Q3

REPORT INFORMATION
  Report Type: 
  Country: None (occurrence: None)
  Receive Date: 20070820
  Receipt Date: 20070425
  Transmission Date: 20080115
  Serious: No
  Sender: FDA-Public Use
  Company Number: WAES 0704USA05709

PATIENT
  Age: 81 Year
  Sex: Male

DRUGS (3)
  1. JANUVIA [Suspect]
     Indication: DIABETES MELLITUS
     Dosage: 100 MG/DAILY/PO
     Route: 048
     Dates: start: 20070411
  2. AMARYL [Concomitant]
  3. DIOVAN [Concomitant]

REACTIONS (2)
  - GASTROINTESTINAL MOTILITY DISORDER [None]
  - WRONG TECHNIQUE IN DRUG USAGE PROCESS [None]
